FAERS Safety Report 18592841 (Version 2)
Quarter: 2021Q3

REPORT INFORMATION
  Report Type: Report from Study
  Country: US (occurrence: US)
  Receive Date: 20201208
  Receipt Date: 20210827
  Transmission Date: 20211014
  Serious: No
  Sender: FDA-Public Use
  Company Number: NVSC2020US325339

PATIENT
  Sex: Female

DRUGS (1)
  1. ENTRESTO [Suspect]
     Active Substance: SACUBITRIL\VALSARTAN
     Indication: PRODUCT USED FOR UNKNOWN INDICATION
     Dosage: 24.26 MG, BID  (STARTED TAKING ENTRESTO APPROX 1.5 YR AGO)
     Route: 048

REACTIONS (3)
  - Weight increased [Unknown]
  - Product dose omission issue [Unknown]
  - Psoriasis [Unknown]
